FAERS Safety Report 24097565 (Version 1)
Quarter: 2024Q3

REPORT INFORMATION
  Report Type: Spontaneous
  Country: FR (occurrence: FR)
  Receive Date: 20240716
  Receipt Date: 20240716
  Transmission Date: 20241017
  Serious: Yes (Death, Hospitalization, Other)
  Sender: FRESENIUS KABI
  Company Number: FR-ALXN-202406EEA000212FR

PATIENT
  Age: 70 Year
  Sex: Female
  Weight: 59 kg

DRUGS (28)
  1. SODIUM CHLORIDE [Suspect]
     Active Substance: SODIUM CHLORIDE
     Indication: Product used for unknown indication
     Dosage: UNK?ROUTE OF ADMIN: UNKNOWN
  2. SOLIRIS [Suspect]
     Active Substance: ECULIZUMAB
     Indication: Atypical haemolytic uraemic syndrome
     Dosage: 900 MILLIGRAM, QW?FOA: CONCENTRATE FOR SOLUTION FOR INFUSION
     Route: 042
     Dates: start: 20240313, end: 20240327
  3. SOLIRIS [Suspect]
     Active Substance: ECULIZUMAB
     Indication: Thrombotic microangiopathy
  4. ZOPICLONE [Concomitant]
     Active Substance: ZOPICLONE
     Indication: Product used for unknown indication
     Dosage: 3.75 MILLIGRAM?ROA: UNKNOWN
  5. FOLIC ACID [Concomitant]
     Active Substance: FOLIC ACID
     Indication: Product used for unknown indication
     Dosage: 5 MILLIGRAM?ROA: UNKNOWN
  6. MIRTAZAPINE [Concomitant]
     Active Substance: MIRTAZAPINE
     Indication: Product used for unknown indication
     Dosage: 15 MILLIGRAM?ROA: UNKNOWN?FOA: TABLET
  7. METHYLPREDNISOLONE [Concomitant]
     Active Substance: METHYLPREDNISOLONE
     Indication: Product used for unknown indication
     Dosage: 120 MILLIGRAM?ROA: UNKNOWN?FOA: INJECTION
  8. OXAZEPAM [Concomitant]
     Active Substance: OXAZEPAM
     Indication: Product used for unknown indication
     Dosage: 10 MILLIGRAM?ROA: UNKNOWN?FOA: TABLET
  9. MEROPENEM [Concomitant]
     Active Substance: MEROPENEM
     Indication: Product used for unknown indication
     Dosage: 2 GRAM, QD?ROA: UNKNOWN?FOA: POWDER FOR CONCENTRATE FOR SOLUTION FOR INJECTION/INFUSION
  10. POLYETHYLENE GLYCOLS [Concomitant]
     Active Substance: POLYETHYLENE GLYCOLS
     Indication: Product used for unknown indication
     Dosage: 10 GRAM?ROA: UNKNOWN
  11. LEVOTHYROXINE SODIUM [Concomitant]
     Active Substance: LEVOTHYROXINE SODIUM
     Indication: Product used for unknown indication
     Dosage: 150 MCG/ML UNK?ROA: UNKNOWN
  12. LEVOTHYROXINE SODIUM [Concomitant]
     Active Substance: LEVOTHYROXINE SODIUM
     Dosage: 50 MICROGRAM?ROA: UNKNOWN
  13. COTRIMOXAZOLE [Concomitant]
     Active Substance: SULFAMETHOXAZOLE\TRIMETHOPRIM
     Indication: Product used for unknown indication
     Dosage: 80 MILLIGRAM/160 MG?ROA: UNKNOWN
  14. PANTOPRAZOLE [Concomitant]
     Active Substance: PANTOPRAZOLE
     Indication: Product used for unknown indication
     Dosage: 40 MILLIGRAM, QD?ROA: UNKNOWN?FOA: INJECTION
  15. CASPOFUNGIN [Concomitant]
     Active Substance: CASPOFUNGIN
     Indication: Product used for unknown indication
     Dosage: 50 MILLIGRAM?ROA: UNKNOWN
  16. CHOLECALCIFEROL [Concomitant]
     Active Substance: CHOLECALCIFEROL
     Indication: Product used for unknown indication
     Dosage: 200000 INTERNATIONAL UNIT?ROA: UNKNOWN
  17. ISAVUCONAZONIUM SULFATE [Concomitant]
     Active Substance: ISAVUCONAZONIUM SULFATE
     Indication: Product used for unknown indication
     Dosage: 600 MILLIGRAM, QD?ROA: UNKNOWN
  18. APIXABAN [Concomitant]
     Active Substance: APIXABAN
     Indication: Product used for unknown indication
     Dosage: 5 MILLIGRAM, QD?ROA: UNKNOWN?FOA: TABLET
  19. SODIUM BICARBONATE [Concomitant]
     Active Substance: SODIUM BICARBONATE
     Indication: Product used for unknown indication
     Dosage: 500 MILLILITER?ROA: UNKNOWN?FOA: INJECTION
  20. PREDNISONE [Concomitant]
     Active Substance: PREDNISONE
     Indication: Product used for unknown indication
     Dosage: 20 MILLIGRAM?ROA: UNKNOWN?FOA: TABLET
  21. PREDNISONE [Concomitant]
     Active Substance: PREDNISONE
     Dosage: 5 MILLIGRAM?ROA: UNKNOWN?FOA: TABLET
  22. ACETAMINOPHEN [Concomitant]
     Active Substance: ACETAMINOPHEN
     Indication: Product used for unknown indication
     Dosage: 1 G/100ML?ROA: UNKNOWN?FOA: INJECTION
  23. AMOXICILLIN [Concomitant]
     Active Substance: AMOXICILLIN
     Indication: Product used for unknown indication
     Dosage: 1 GRAM, QD?FOA: INJECTION
     Route: 042
  24. ISOSORBIDE [Concomitant]
     Active Substance: ISOSORBIDE
     Indication: Product used for unknown indication
     Dosage: 10 MILLIGRAM/10ML?ROA: UNKNOWN?FOA: INJECTION
  25. FUROSEMIDE [Concomitant]
     Active Substance: FUROSEMIDE
     Indication: Product used for unknown indication
     Dosage: 250 MILLIGRAM/25ML, QD?FOA: INJECTION?ROA: UNKNOWN
     Dates: end: 20240308
  26. LANSOPRAZOLE [Concomitant]
     Active Substance: LANSOPRAZOLE
     Indication: Product used for unknown indication
     Dosage: 15 MILLIGRAM
     Route: 048
  27. Delical creme [Concomitant]
     Indication: Product used for unknown indication
     Dosage: 125 GRAM
  28. PIPERACILLIN SODIUM\TAZOBACTAM SODIUM [Concomitant]
     Active Substance: PIPERACILLIN SODIUM\TAZOBACTAM SODIUM
     Indication: Product used for unknown indication
     Dosage: 8 GRAM, QD?ROA: UNKNOWN

REACTIONS (11)
  - Aspergillus infection [Fatal]
  - Pneumonia klebsiella [Unknown]
  - Acute pulmonary oedema [Unknown]
  - Acute respiratory distress syndrome [Unknown]
  - Pneumocystis jirovecii pneumonia [Unknown]
  - Acute kidney injury [Unknown]
  - Hypotension [Unknown]
  - Psychiatric decompensation [Unknown]
  - Arrhythmia supraventricular [Unknown]
  - Off label use [Unknown]
  - Dyskalaemia [Unknown]

NARRATIVE: CASE EVENT DATE: 20240328
